FAERS Safety Report 4668005-3 (Version None)
Quarter: 2005Q2

REPORT INFORMATION
  Report Type: 
  Country: None (occurrence: None)
  Receive Date: 20050520
  Receipt Date: 20050511
  Transmission Date: 20051028
  Serious: Yes (Disabling)
  Sender: FDA-Public Use
  Company Number: GB-ABBOTT-05P-167-0300470-00

PATIENT
  Sex: Female
  Weight: 77.7 kg

DRUGS (10)
  1. SIBUTRAMINE (BLINDED) [Suspect]
     Indication: OBESITY
     Route: 048
     Dates: start: 20040311, end: 20040723
  2. SIBUTRAMINE (BLINDED) [Suspect]
  3. INSULIN LISPRO [Concomitant]
     Indication: DIABETES MELLITUS NON-INSULIN-DEPENDENT
     Dosage: 16 U
     Route: 058
     Dates: start: 20030101
  4. INSULIN LISPRO [Concomitant]
     Dosage: 14 U
  5. INSULIN LISPRO [Concomitant]
     Dosage: 32 U
  6. INSULIN GLARGINE [Concomitant]
     Indication: DIABETES MELLITUS NON-INSULIN-DEPENDENT
     Dates: start: 20040101
  7. VALSARTAN [Concomitant]
     Indication: HYPERTENSION
     Dates: start: 20041101
  8. SIMVASTATIN [Concomitant]
     Indication: DYSLIPIDAEMIA
     Dates: start: 20040101
  9. ROSIGLITAZONE [Concomitant]
     Indication: DIABETES MELLITUS NON-INSULIN-DEPENDENT
     Dates: start: 20030301, end: 20050104
  10. RAMIPRIL [Concomitant]
     Indication: HYPERTENSION
     Dates: start: 20030301, end: 20041122

REACTIONS (1)
  - PULMONARY HYPERTENSION [None]
